FAERS Safety Report 13995824 (Version 13)
Quarter: 2020Q4

REPORT INFORMATION
  Report Type: Report from Study
  Country: CA (occurrence: CA)
  Receive Date: 20170921
  Receipt Date: 20201109
  Transmission Date: 20210113
  Serious: Yes (Other)
  Sender: FDA-Public Use
  Company Number: PHHY2015CA002165

PATIENT
  Age: 64 Year
  Sex: Male

DRUGS (5)
  1. SANDOSTATIN LAR DEPOT [Suspect]
     Active Substance: OCTREOTIDE ACETATE
     Indication: CARCINOID TUMOUR
     Dosage: 30 MG, QMO (EVERY 4 WEEKS)
     Route: 030
     Dates: start: 20101102, end: 20171116
  2. SANDOSTATIN LAR DEPOT [Suspect]
     Active Substance: OCTREOTIDE ACETATE
     Dosage: 30 MG, Q4W
     Route: 030
     Dates: start: 20190717
  3. DIOVAN [Concomitant]
     Active Substance: VALSARTAN
     Indication: PRODUCT USED FOR UNKNOWN INDICATION
     Dosage: UNK
     Route: 065
  4. SANDOSTATIN LAR DEPOT [Suspect]
     Active Substance: OCTREOTIDE ACETATE
     Dosage: 40 MG, QMO
     Route: 030
     Dates: start: 20180307
  5. LANREOTIDE [Suspect]
     Active Substance: LANREOTIDE
     Indication: CARCINOID TUMOUR
     Dosage: UNK
     Route: 065
     Dates: start: 2017, end: 2018

REACTIONS (10)
  - Blood pressure increased [Unknown]
  - Body temperature decreased [Unknown]
  - Mass [Unknown]
  - Injection site bruising [Unknown]
  - Drug ineffective [Unknown]
  - Skin cancer [Unknown]
  - Infection [Unknown]
  - Complication associated with device [Unknown]
  - Skin lesion [Unknown]
  - Second primary malignancy [Unknown]

NARRATIVE: CASE EVENT DATE: 201412
